FAERS Safety Report 26004632 (Version 1)
Quarter: 2025Q4

REPORT INFORMATION
  Report Type: Spontaneous
  Country: JP (occurrence: JP)
  Receive Date: 20251106
  Receipt Date: 20251106
  Transmission Date: 20260118
  Serious: Yes (Life-Threatening, Hospitalization)
  Sender: ACCORD
  Company Number: JP-MLMSERVICE-20251020-PI683008-00082-2

PATIENT
  Age: 61 Year
  Sex: Male

DRUGS (5)
  1. CARBOPLATIN [Suspect]
     Active Substance: CARBOPLATIN
     Indication: Neuroendocrine carcinoma of prostate
     Dosage: AUC 5, 4 CYCLICAL
     Dates: start: 2024, end: 2024
  2. ETOPOSIDE [Suspect]
     Active Substance: ETOPOSIDE
     Indication: Neuroendocrine carcinoma of prostate
     Dosage: 4 CYCLICAL
     Dates: start: 2024, end: 2024
  3. DEGARELIX [Concomitant]
     Active Substance: DEGARELIX
     Indication: Hormone-refractory prostate cancer
     Dates: start: 2024, end: 2024
  4. DEGARELIX [Concomitant]
     Active Substance: DEGARELIX
     Indication: Metastases to bone
     Dates: start: 2024, end: 2024
  5. DEGARELIX [Concomitant]
     Active Substance: DEGARELIX
     Indication: Metastases to lymph nodes
     Dates: start: 2024, end: 2024

REACTIONS (2)
  - Febrile neutropenia [Unknown]
  - Septic shock [Unknown]

NARRATIVE: CASE EVENT DATE: 20240101
